FAERS Safety Report 5562683-2 (Version None)
Quarter: 2007Q4

REPORT INFORMATION
  Report Type: 
  Country: None (occurrence: None)
  Receive Date: 20071217
  Receipt Date: 20071210
  Transmission Date: 20080405
  Serious: Yes (Death)
  Sender: FDA-Public Use
  Company Number: CN-BAYER-200717987GPV

PATIENT
  Age: 68 Year
  Sex: Male
  Weight: 70 kg

DRUGS (1)
  1. NEXAVAR [Suspect]
     Indication: METASTATIC RENAL CELL CARCINOMA
     Dosage: AS USED: 400 MG
     Route: 048
     Dates: start: 20070813, end: 20070819

REACTIONS (2)
  - HEPATIC FAILURE [None]
  - TRANSAMINASES INCREASED [None]
